FAERS Safety Report 10253134 (Version 3)
Quarter: 2015Q1

REPORT INFORMATION
  Report Type: Spontaneous
  Country: US (occurrence: US)
  Receive Date: 20140623
  Receipt Date: 20150204
  Transmission Date: 20150720
  Serious: Yes (Hospitalization, Other)
  Sender: FDA-Public Use
  Company Number: US-GLAXOSMITHKLINE-A1078029A

PATIENT
  Age: 80 Year
  Sex: Female

DRUGS (3)
  1. MAGNESIUM CITRATE. [Suspect]
     Active Substance: MAGNESIUM CITRATE
     Indication: DIARRHOEA
     Route: 065
  2. MEKINIST [Suspect]
     Active Substance: TRAMETINIB DIMETHYL SULFOXIDE
     Indication: METASTATIC OCULAR MELANOMA
     Dosage: 2 MG TABLETS, UNKNOWN DOSING.DOSE REDUCED TO 1.5 MG. UNKNOWN FREQUENCY.
     Route: 065
     Dates: start: 20140605
  3. MEKINIST [Suspect]
     Active Substance: TRAMETINIB DIMETHYL SULFOXIDE
     Dosage: 1.5 MG, QD
     Dates: end: 20141231

REACTIONS (9)
  - Vomiting [Unknown]
  - Constipation [Unknown]
  - Feeling abnormal [Unknown]
  - Dehydration [Unknown]
  - Diarrhoea [Unknown]
  - Transient ischaemic attack [Unknown]
  - Fatigue [Unknown]
  - Drug ineffective [Unknown]
  - Rash [Not Recovered/Not Resolved]

NARRATIVE: CASE EVENT DATE: 201406
